FAERS Safety Report 8576987-2 (Version None)
Quarter: 2012Q3

REPORT INFORMATION
  Report Type: 
  Country: None (occurrence: None)
  Receive Date: 20120807
  Receipt Date: 20120803
  Transmission Date: 20120928
  Serious: Yes (Other)
  Sender: FDA-Public Use
  Company Number: DE-BAYER-2012-079607

PATIENT
  Age: 29 Year
  Sex: Female

DRUGS (1)
  1. EXTAVIA [Suspect]
     Indication: MULTIPLE SCLEROSIS
     Dosage: 1 ML, QOD
     Route: 058
     Dates: start: 20111219

REACTIONS (4)
  - VISION BLURRED [None]
  - VISUAL ACUITY REDUCED [None]
  - OPTIC NEURITIS [None]
  - EYE PAIN [None]
